FAERS Safety Report 5130568-1 (Version None)
Quarter: 2006Q4

REPORT INFORMATION
  Report Type: 
  Country: None (occurrence: None)
  Receive Date: 20061017
  Receipt Date: 20061017
  Transmission Date: 20070319
  Serious: Yes (Hospitalization)
  Sender: FDA-Public Use
  Company Number: None

PATIENT
  Age: 83 Year
  Sex: Female

DRUGS (12)
  1. DILANTIN [Suspect]
     Indication: CONVULSION
  2. CLINDAMYCIN [Concomitant]
  3. APAP TAB [Concomitant]
  4. SINEMET [Concomitant]
     Dosage: 10
  5. SYNTHROID [Concomitant]
  6. METOPROLOL [Concomitant]
  7. PLAVIX [Concomitant]
  8. PROTONIX [Concomitant]
  9. HEPARIN [Concomitant]
  10. XOPENEX [Concomitant]
  11. ATIVAN [Concomitant]
  12. AVELOX [Concomitant]

REACTIONS (3)
  - CONDITION AGGRAVATED [None]
  - LEUKOCYTOSIS [None]
  - PYREXIA [None]
